FAERS Safety Report 10634042 (Version 6)
Quarter: 2015Q1

REPORT INFORMATION
  Report Type: Report from Study
  Country: UA (occurrence: UA)
  Receive Date: 20141205
  Receipt Date: 20150327
  Transmission Date: 20150720
  Serious: Yes (Death, Hospitalization, Other)
  Sender: FDA-Public Use
  Company Number: UA-JNJFOC-20140922286

PATIENT
  Sex: Male
  Weight: 125 kg

DRUGS (23)
  1. PRESTARIUM [Concomitant]
     Active Substance: PERINDOPRIL
     Route: 065
     Dates: start: 20130401
  2. CONCOR [Concomitant]
     Active Substance: BISOPROLOL FUMARATE
     Route: 065
     Dates: start: 20130401
  3. NITROSORBIDE [Concomitant]
     Route: 065
     Dates: start: 20140311, end: 20140314
  4. ETAMSILATE [Concomitant]
     Route: 065
     Dates: start: 20140825, end: 20140829
  5. XARELTO [Suspect]
     Active Substance: RIVAROXABAN
     Indication: CEREBROVASCULAR ACCIDENT PROPHYLAXIS
     Route: 048
     Dates: start: 20130917, end: 20140825
  6. THEOPHYLLINE [Concomitant]
     Active Substance: THEOPHYLLINE ANHYDROUS
     Route: 065
     Dates: start: 20140428, end: 20140505
  7. LEVOFLOXACINE [Concomitant]
     Active Substance: LEVOFLOXACIN
     Route: 065
     Dates: start: 20140428, end: 20140505
  8. VEROSPIRON [Concomitant]
     Active Substance: SPIRONOLACTONE
     Route: 065
     Dates: start: 20130401, end: 20130916
  9. FUROSEMID [Concomitant]
     Active Substance: FUROSEMIDE
     Route: 065
     Dates: start: 20140428
  10. FUROSEMID [Concomitant]
     Active Substance: FUROSEMIDE
     Route: 065
     Dates: start: 20140307, end: 20140321
  11. XARELTO [Suspect]
     Active Substance: RIVAROXABAN
     Indication: ATRIAL FIBRILLATION
     Route: 048
     Dates: start: 20130917, end: 20140825
  12. THEOPHYLLINE [Concomitant]
     Active Substance: THEOPHYLLINE ANHYDROUS
     Route: 065
  13. SODAMINT [Concomitant]
     Route: 065
     Dates: start: 20140307, end: 20140310
  14. NORDAZEPAM [Concomitant]
     Active Substance: NORDAZEPAM
     Route: 065
     Dates: start: 20140307
  15. ETAMSYLATE [Concomitant]
     Active Substance: ETHAMSYLATE
     Route: 065
     Dates: start: 20140825, end: 20140829
  16. XARELTO [Suspect]
     Active Substance: RIVAROXABAN
     Indication: THROMBOSIS PROPHYLAXIS
     Route: 048
     Dates: start: 20130917, end: 20140825
  17. AMBROXOL [Concomitant]
     Active Substance: AMBROXOL
     Route: 065
     Dates: start: 20140320
  18. NIMESULIDE [Concomitant]
     Active Substance: NIMESULIDE
     Route: 065
     Dates: start: 20140514, end: 20140520
  19. CEFTRIAXONE. [Concomitant]
     Active Substance: CEFTRIAXONE
     Route: 065
     Dates: start: 20140428, end: 20140505
  20. FUROSEMID [Concomitant]
     Active Substance: FUROSEMIDE
     Route: 065
     Dates: start: 20130917
  21. MANINIL [Concomitant]
     Route: 065
     Dates: start: 2012, end: 20130919
  22. DIABETON MR [Concomitant]
     Route: 065
     Dates: start: 20130920
  23. VEROSPIRON [Concomitant]
     Active Substance: SPIRONOLACTONE
     Route: 065
     Dates: start: 20130917

REACTIONS (2)
  - Pleurisy [Fatal]
  - Gastrointestinal haemorrhage [Fatal]

NARRATIVE: CASE EVENT DATE: 20140610
